FAERS Safety Report 8120991-5 (Version None)
Quarter: 2012Q1

REPORT INFORMATION
  Report Type: 
  Country: None (occurrence: None)
  Receive Date: 20120208
  Receipt Date: 20120203
  Transmission Date: 20120608
  Serious: Yes (Other)
  Sender: FDA-Public Use
  Company Number: ES-TEVA-314639ISR

PATIENT
  Age: 71 Year
  Sex: Male

DRUGS (1)
  1. PANTOPRAZOLE [Suspect]
     Dosage: 20 MILLIGRAM;
     Dates: start: 20070101

REACTIONS (3)
  - HYPOMAGNESAEMIA [None]
  - HYPOCALCAEMIA [None]
  - HYPOPARATHYROIDISM [None]
